FAERS Safety Report 23100030 (Version 2)
Quarter: 2023Q4

REPORT INFORMATION
  Report Type: Spontaneous
  Country: RU (occurrence: RU)
  Receive Date: 20231024
  Receipt Date: 20231107
  Transmission Date: 20240110
  Serious: Yes (Death, Other)
  Sender: FDA-Public Use
  Company Number: RU-SA-SAC20231010000629

PATIENT
  Age: 44 Year
  Sex: Female

DRUGS (13)
  1. DUPILUMAB [Suspect]
     Active Substance: DUPILUMAB
     Indication: Asthma
     Dosage: UNK
     Route: 058
     Dates: start: 202008
  2. OMALIZUMAB [Concomitant]
     Active Substance: OMALIZUMAB
     Dosage: UNK
  3. BENRALIZUMAB [Concomitant]
     Active Substance: BENRALIZUMAB
     Dosage: UNK
  4. MEPOLIZUMAB [Concomitant]
     Active Substance: MEPOLIZUMAB
     Dosage: UNK
  5. RESLIZUMAB [Concomitant]
     Active Substance: RESLIZUMAB
     Dosage: UNK
  6. FOSTER [Concomitant]
     Active Substance: BECLOMETHASONE\FORMOTEROL
  7. MONTELUKAST SODIUM [Concomitant]
     Active Substance: MONTELUKAST SODIUM
  8. PREDNISOLONE [Concomitant]
     Active Substance: PREDNISOLONE
  9. FENOTEROL HYDROBROMIDE\IPRATROPIUM BROMIDE [Concomitant]
     Active Substance: FENOTEROL HYDROBROMIDE\IPRATROPIUM BROMIDE
  10. RHINOSTOP [XYLOMETAZOLINE HYDROCHLORIDE] [Concomitant]
  11. OMEPRAZOLE [Concomitant]
     Active Substance: OMEPRAZOLE
  12. ITOPRIDE [Concomitant]
     Active Substance: ITOPRIDE
  13. DUPHALAC [Concomitant]
     Active Substance: LACTULOSE

REACTIONS (1)
  - Cardiac failure acute [Fatal]

NARRATIVE: CASE EVENT DATE: 20211001
